FAERS Safety Report 17725861 (Version 1)
Quarter: 2020Q2

REPORT INFORMATION
  Report Type: Spontaneous
  Country: CN (occurrence: CN)
  Receive Date: 20200429
  Receipt Date: 20200429
  Transmission Date: 20200714
  Serious: Yes (Other)
  Sender: FDA-Public Use
  Company Number: CN-EISAI MEDICAL RESEARCH-EC-2020-073762

PATIENT

DRUGS (1)
  1. LENVIMA [Suspect]
     Active Substance: LENVATINIB
     Indication: PRODUCT USED FOR UNKNOWN INDICATION
     Dosage: DOSE AND FREQUENCY UNKNOWN
     Route: 048
     Dates: start: 20200401, end: 20200413

REACTIONS (4)
  - Diplegia [Unknown]
  - Urinary incontinence [Unknown]
  - Blood pressure increased [Unknown]
  - Anal incontinence [Unknown]

NARRATIVE: CASE EVENT DATE: 202004
